FAERS Safety Report 12698712 (Version 1)
Quarter: 2016Q3

REPORT INFORMATION
  Report Type: Report from Study
  Country: BE (occurrence: BE)
  Receive Date: 20160830
  Receipt Date: 20160830
  Transmission Date: 20161109
  Serious: Yes (Hospitalization)
  Sender: FDA-Public Use
  Company Number: BE-ABBVIE-16K-013-1708301-00

PATIENT
  Sex: Female

DRUGS (3)
  1. DUODOPA [Suspect]
     Active Substance: CARBIDOPA\LEVODOPA
     Dosage: DOSAGES CONTINUOUSLY MONITORED AND ADJUSTED
     Route: 050
     Dates: start: 20110511, end: 20140303
  2. DUODOPA [Suspect]
     Active Substance: CARBIDOPA\LEVODOPA
     Indication: PARKINSON^S DISEASE
     Dosage: AM: 3ML; CD: 1.6ML/H FOR 16 HRS; ED: 1.2ML
     Route: 050
     Dates: start: 20110509, end: 20110512
  3. DUODOPA [Suspect]
     Active Substance: CARBIDOPA\LEVODOPA
     Dosage: AM: 3.5ML; CD: 1.9ML/H FOR 16 HRS; ED: 1.2ML
     Route: 050
     Dates: start: 20140303, end: 201608

REACTIONS (6)
  - Gastrointestinal ulcer perforation [Unknown]
  - Device dislocation [Unknown]
  - Stoma site inflammation [Unknown]
  - Pallor [Unknown]
  - Hypotonia [Unknown]
  - Stoma site ulcer [Unknown]
